FAERS Safety Report 23378084 (Version 1)
Quarter: 2024Q1

REPORT INFORMATION
  Report Type: Spontaneous
  Country: US (occurrence: None)
  Receive Date: 20240105
  Receipt Date: 20240105
  Transmission Date: 20240409
  Serious: Yes (Hospitalization)
  Sender: FDA-Public Use
  Company Number: None

PATIENT
  Sex: Female

DRUGS (15)
  1. REPATHA [Suspect]
     Active Substance: EVOLOCUMAB
     Indication: Type V hyperlipidaemia
     Dosage: FREQUENCY : EVERY OTHER WEEK;?
     Route: 058
  2. BACLOFEN [Concomitant]
     Active Substance: BACLOFEN
  3. CELECOXIB [Concomitant]
     Active Substance: CELECOXIB
  4. DIAZEPAM [Concomitant]
     Active Substance: DIAZEPAM
  5. ATROPINE SULFATE\DIPHENOXYLATE [Concomitant]
     Active Substance: ATROPINE SULFATE\DIPHENOXYLATE
  6. FLUCONAZOLE [Concomitant]
     Active Substance: FLUCONAZOLE
  7. METHOCARBAMOL [Concomitant]
     Active Substance: METHOCARBAMOL
  8. MYRBETRIQ [Concomitant]
     Active Substance: MIRABEGRON
  9. NARCAN SPR [Concomitant]
  10. NITRO-BID OIN 2% [Concomitant]
  11. OXYCODONE AND ACETAMINOPHEN [Concomitant]
     Active Substance: ACETAMINOPHEN\OXYCODONE HYDROCHLORIDE
  12. PREGABALIN [Concomitant]
     Active Substance: PREGABALIN
  13. VRAYLAR [Concomitant]
     Active Substance: CARIPRAZINE
  14. XTAMPZA ER [Concomitant]
     Active Substance: OXYCODONE
  15. ZOLPIDEM [Concomitant]
     Active Substance: ZOLPIDEM TARTRATE

REACTIONS (1)
  - Surgery [None]
